FAERS Safety Report 8788915 (Version 1)
Quarter: 2012Q4

REPORT INFORMATION
  Report Type: 
  Country: US (occurrence: US)
  Receive Date: 20120917
  Receipt Date: 20120917
  Transmission Date: 20130627
  Serious: No
  Sender: FDA-Public Use
  Company Number: US-PFIZER INC-2012228493

PATIENT
  Age: 54 Year
  Sex: Male
  Weight: 115.65 kg

DRUGS (8)
  1. GEODON [Suspect]
     Indication: SCHIZOPHRENIA, PARANOID TYPE
     Dosage: 80 mg, 2x/day
     Route: 048
     Dates: end: 20120907
  2. QUETIAPINE [Suspect]
     Indication: SCHIZOPHRENIA, PARANOID TYPE
     Dosage: 100 mg, 1x/day
     Route: 048
     Dates: start: 20120907, end: 201209
  3. QUETIAPINE [Suspect]
     Dosage: 200 mg, 1x/day
     Route: 048
     Dates: start: 201209, end: 201209
  4. QUETIAPINE [Suspect]
     Dosage: 300 mg, 1x/day
     Route: 048
     Dates: start: 201209
  5. STRATTERA [Concomitant]
     Dosage: 40 mg, 2x/day
  6. CITALOPRAM [Concomitant]
     Dosage: 40 mg, 1x/day
  7. AMLODIPINE [Concomitant]
     Dosage: 5 mg, 1x/day
  8. PRAVASTATIN [Concomitant]
     Dosage: 40 mg, 1x/day

REACTIONS (6)
  - Personality change [Not Recovered/Not Resolved]
  - Malaise [Not Recovered/Not Resolved]
  - Feeling abnormal [Not Recovered/Not Resolved]
  - Sensation of foreign body [Not Recovered/Not Resolved]
  - Nausea [Not Recovered/Not Resolved]
  - Dizziness [Not Recovered/Not Resolved]
